FAERS Safety Report 18752339 (Version 1)
Quarter: 2021Q1

REPORT INFORMATION
  Report Type: Spontaneous
  Country: US (occurrence: US)
  Receive Date: 20210118
  Receipt Date: 20210118
  Transmission Date: 20210419
  Serious: No
  Sender: FDA-Public Use
  Company Number: US-FOUNDATIONCONSUMERHC-2020-US-024765

PATIENT
  Age: 26 Year
  Sex: Female
  Weight: 115.21 kg

DRUGS (5)
  1. PLAN B ONE?STEP [Suspect]
     Active Substance: LEVONORGESTREL
     Indication: POST COITAL CONTRACEPTION
     Dosage: 1 TABLET X1 DOSE
     Route: 048
     Dates: start: 20201128, end: 20201128
  2. UNSPECIFIED  BIRTH CONTROL [Concomitant]
     Active Substance: UNSPECIFIED INGREDIENT
  3. ELDERBERRY [Concomitant]
     Active Substance: HERBALS
  4. VITAMIN C [Concomitant]
     Active Substance: ASCORBIC ACID
  5. MULTIVITAMIN [Concomitant]
     Active Substance: VITAMINS

REACTIONS (3)
  - Intentional product misuse [Recovered/Resolved]
  - Product use in unapproved indication [Recovered/Resolved]
  - Menstruation delayed [Not Recovered/Not Resolved]

NARRATIVE: CASE EVENT DATE: 20201128
